FAERS Safety Report 9708679 (Version 2)
Quarter: 2014Q1

REPORT INFORMATION
  Report Type: Report from Study
  Country: US (occurrence: US)
  Receive Date: 20131125
  Receipt Date: 20140120
  Transmission Date: 20141002
  Serious: Yes (Disabling, Other)
  Sender: FDA-Public Use
  Company Number: US-ABBVIE-13P-163-1170531-00

PATIENT
  Age: 39 Year
  Sex: Female

DRUGS (7)
  1. HUMIRA [Suspect]
     Indication: JUVENILE IDIOPATHIC ARTHRITIS
     Dates: end: 20130915
  2. NAPROSYN [Concomitant]
     Indication: RHEUMATOID ARTHRITIS
     Dosage: DAILY
  3. PREDNISONE [Concomitant]
     Indication: JUVENILE IDIOPATHIC ARTHRITIS
  4. PREDNISONE [Concomitant]
     Route: 048
  5. PREDNISONE [Concomitant]
  6. STEROIDS [Concomitant]
     Indication: PRODUCT USED FOR UNKNOWN INDICATION
  7. STEROIDS [Concomitant]
     Route: 042

REACTIONS (3)
  - Vision blurred [Recovering/Resolving]
  - Visual acuity reduced [Unknown]
  - Optic neuritis [Not Recovered/Not Resolved]
